FAERS Safety Report 14696029 (Version 3)
Quarter: 2018Q3

REPORT INFORMATION
  Report Type: Report from Study
  Country: AU (occurrence: AU)
  Receive Date: 20180329
  Receipt Date: 20180710
  Transmission Date: 20181010
  Serious: Yes (Other)
  Sender: FDA-Public Use
  Company Number: PHHY2018AU049859

PATIENT
  Age: 56 Year
  Sex: Male

DRUGS (2)
  1. COSENTYX [Suspect]
     Active Substance: SECUKINUMAB
     Indication: PSORIATIC ARTHROPATHY
  2. COSENTYX [Suspect]
     Active Substance: SECUKINUMAB
     Indication: PSORIASIS
     Dosage: 300 MG, QMO
     Route: 058
     Dates: start: 20171212, end: 20180123

REACTIONS (10)
  - Dyspepsia [Unknown]
  - Urticaria papular [Unknown]
  - Lichenoid keratosis [Unknown]
  - Urticaria [Unknown]
  - Nausea [Unknown]
  - Skin oedema [Unknown]
  - Rash [Unknown]
  - Skin cancer [Unknown]
  - Skin lesion [Unknown]
  - Drug hypersensitivity [Recovering/Resolving]

NARRATIVE: CASE EVENT DATE: 20171219
